FAERS Safety Report 5988940-3 (Version None)
Quarter: 2008Q4

REPORT INFORMATION
  Report Type: 
  Country: None (occurrence: None)
  Receive Date: 20081204
  Receipt Date: 20081125
  Transmission Date: 20090506
  Serious: Yes (Disabling)
  Sender: FDA-Public Use
  Company Number: 2008SP024201

PATIENT
  Age: 47 Year
  Sex: Male

DRUGS (1)
  1. NASONEX [Suspect]
     Indication: NASAL CONGESTION
     Dosage: BID; NAS
     Route: 045
     Dates: start: 20060523, end: 20060929

REACTIONS (6)
  - EPISTAXIS [None]
  - MALAISE [None]
  - NASAL SEPTUM PERFORATION [None]
  - PARANASAL SINUS MUCOSAL HYPERTROPHY [None]
  - SCAB [None]
  - SLEEP DISORDER [None]
